FAERS Safety Report 24723969 (Version 1)
Quarter: 2024Q4

REPORT INFORMATION
  Report Type: Spontaneous
  Country: US (occurrence: US)
  Receive Date: 20241211
  Receipt Date: 20241211
  Transmission Date: 20250115
  Serious: No
  Sender: ABBVIE
  Company Number: US-ABBVIE-6039952

PATIENT

DRUGS (2)
  1. CARIPRAZINE [Suspect]
     Active Substance: CARIPRAZINE
     Indication: Product used for unknown indication
     Route: 048
     Dates: start: 20241017, end: 20241114
  2. CARIPRAZINE [Suspect]
     Active Substance: CARIPRAZINE
     Indication: Product used for unknown indication
     Route: 048
     Dates: start: 20241115, end: 20241117

REACTIONS (1)
  - Restlessness [Recovered/Resolved]

NARRATIVE: CASE EVENT DATE: 20241116
